FAERS Safety Report 24618914 (Version 1)
Quarter: 2024Q4

REPORT INFORMATION
  Report Type: Spontaneous
  Country: US (occurrence: None)
  Receive Date: 20241113
  Receipt Date: 20241113
  Transmission Date: 20250114
  Serious: Yes (Hospitalization)
  Sender: Public
  Company Number: None

PATIENT
  Sex: 0

DRUGS (1)
  1. OZEMPIC [Suspect]
     Active Substance: SEMAGLUTIDE

REACTIONS (7)
  - Confusional state [None]
  - Lethargy [None]
  - Intellectual disability [None]
  - Cardiac disorder [None]
  - Nausea [None]
  - Retching [None]
  - Feeling abnormal [None]
